FAERS Safety Report 7686199-2 (Version None)
Quarter: 2011Q3

REPORT INFORMATION
  Report Type: 
  Country: None (occurrence: None)
  Receive Date: 20110816
  Receipt Date: 20110802
  Transmission Date: 20111222
  Serious: Yes (Hospitalization, Other)
  Sender: FDA-Public Use
  Company Number: DE-UCBSA-020308

PATIENT
  Sex: Male
  Weight: 65 kg

DRUGS (12)
  1. VALPROIC ACID [Concomitant]
  2. VIMPAT [Suspect]
     Route: 048
     Dates: start: 20100522
  3. CARBAMAZEPINE - RATIOPHARM [Concomitant]
  4. OXCARBAZEPINE [Concomitant]
  5. KEPPRA [Suspect]
     Indication: EPILEPSY
     Route: 048
     Dates: start: 20050101
  6. LAMOTRIGINE [Concomitant]
  7. VIMPAT [Suspect]
     Dates: start: 20100501, end: 20100501
  8. KEPPRA [Suspect]
  9. PREGABALIN [Concomitant]
  10. TOPIRAMATE [Concomitant]
  11. CARBAMAZEPINE - RATIOPHARM [Concomitant]
     Indication: EPILEPSY
     Route: 048
     Dates: start: 20010101
  12. VIMPAT [Suspect]
     Indication: EPILEPSY
     Dates: start: 20100501, end: 20100501

REACTIONS (7)
  - PARESIS [None]
  - GAIT DISTURBANCE [None]
  - MULTIPLE MYELOMA [None]
  - PARAESTHESIA [None]
  - CONVULSION [None]
  - INFLAMMATORY MARKER INCREASED [None]
  - POLYNEUROPATHY [None]
